FAERS Safety Report 24653258 (Version 1)
Quarter: 2024Q4

REPORT INFORMATION
  Report Type: Spontaneous
  Country: FR (occurrence: FR)
  Receive Date: 20241122
  Receipt Date: 20241122
  Transmission Date: 20250114
  Serious: Yes (Hospitalization, Other)
  Sender: MYLAN
  Company Number: None

PATIENT
  Age: 30 Year
  Sex: Male

DRUGS (4)
  1. TRAMADOL [Suspect]
     Active Substance: TRAMADOL
     Indication: Product used for unknown indication
     Dosage: 1 DOSAGE FORM (1 TABLET OF 200 MG)
     Route: 048
     Dates: start: 2016
  2. PREGABALIN [Suspect]
     Active Substance: PREGABALIN
     Indication: Product used for unknown indication
     Dosage: 2 DOSAGE FORM (2 CAPSULES OF 300 MG)
     Route: 048
     Dates: start: 2017
  3. CANNABIS SATIVA SUBSP. INDICA TOP [Suspect]
     Active Substance: CANNABIS SATIVA SUBSP. INDICA TOP
     Indication: Product used for unknown indication
     Dosage: UNK (20 TO 30 JOINTS/DAY)
     Route: 055
     Dates: start: 2017
  4. RIVOTRIL [Suspect]
     Active Substance: CLONAZEPAM
     Indication: Product used for unknown indication
     Dosage: 1 DOSAGE FORM, QD (1 TABLET OF 2 MG IN THE MORNING)
     Route: 048
     Dates: start: 2017

REACTIONS (2)
  - Drug abuse [Not Recovered/Not Resolved]
  - Drug detoxification [Recovered/Resolved]

NARRATIVE: CASE EVENT DATE: 20230919
